FAERS Safety Report 20869097 (Version 1)
Quarter: 2022Q2

REPORT INFORMATION
  Report Type: Spontaneous
  Country: US (occurrence: None)
  Receive Date: 20220520
  Receipt Date: 20220520
  Transmission Date: 20220721
  Serious: No
  Sender: FDA-Public Use
  Company Number: None

PATIENT
  Age: 72 Year
  Sex: Male

DRUGS (2)
  1. BACLOFEN [Suspect]
     Active Substance: BACLOFEN
     Indication: Product used for unknown indication
  2. THORAZINE [Suspect]
     Active Substance: CHLORPROMAZINE
     Indication: Product used for unknown indication

REACTIONS (9)
  - Product prescribing error [None]
  - Asthenia [None]
  - Fall [None]
  - Pyrexia [None]
  - Tremor [None]
  - Withdrawal syndrome [None]
  - Rhabdomyolysis [None]
  - Muscle spasticity [None]
  - Muscle rigidity [None]
